FAERS Safety Report 10979752 (Version 1)
Quarter: 2015Q2

REPORT INFORMATION
  Report Type: Spontaneous
  Country: US (occurrence: US)
  Receive Date: 20150402
  Receipt Date: 20150402
  Transmission Date: 20150821
  Serious: No
  Sender: FDA-Public Use
  Company Number: US-SA-2014SA145143

PATIENT
  Sex: Male

DRUGS (2)
  1. ALLEGRA [Suspect]
     Active Substance: FEXOFENADINE HYDROCHLORIDE
     Indication: HYPERSENSITIVITY
     Dosage: GIVEN 5 DOSES UNTIL TODAY.
     Route: 048
     Dates: start: 20141016, end: 20141020
  2. ALLEGRA [Suspect]
     Active Substance: FEXOFENADINE HYDROCHLORIDE
     Indication: HYPERSENSITIVITY
     Dosage: HE MIGHT HAVE GOTTEN 10-15 ML MORE THAN THE 5 ML?GIVEN EARLIER TODAY.
     Route: 048
     Dates: start: 20141020

REACTIONS (1)
  - Extra dose administered [Unknown]
